FAERS Safety Report 4760788-7 (Version None)
Quarter: 2005Q3

REPORT INFORMATION
  Report Type: 
  Country: None (occurrence: None)
  Receive Date: 20050902
  Receipt Date: 20050516
  Transmission Date: 20060218
  Serious: Yes (Other)
  Sender: FDA-Public Use
  Company Number: 200514216US

PATIENT
  Sex: Male
  Weight: 89.5 kg

DRUGS (8)
  1. LANTUS [Suspect]
     Indication: DIABETES MELLITUS NON-INSULIN-DEPENDENT
     Dosage: DOSE UNIT: UNITS
     Dates: start: 20050201
  2. OPTICLIK (INSULIN INJECTION PEN) [Suspect]
     Dosage: DOSE: UNK
     Dates: start: 20050223
  3. ACTOS [Concomitant]
     Dates: start: 20050101
  4. PRANDIN [Concomitant]
     Indication: DIABETES MELLITUS
     Dates: start: 20010101
  5. NEURONTIN [Concomitant]
     Indication: NEUROPATHY
     Dates: start: 20010101
  6. NOVOLOG [Concomitant]
     Dosage: DOSE: UNK
  7. ANTIBIOTICS [Concomitant]
     Dosage: DOSE: UNK
  8. ALTACE [Concomitant]
     Indication: BLOOD PRESSURE
     Dates: start: 20050101

REACTIONS (8)
  - ABSCESS [None]
  - BLOOD GLUCOSE INCREASED [None]
  - BRONCHITIS [None]
  - ERYTHEMA [None]
  - INJECTION SITE ABSCESS [None]
  - INJECTION SITE HAEMORRHAGE [None]
  - MEDICAL DEVICE COMPLICATION [None]
  - PHARMACEUTICAL PRODUCT COMPLAINT [None]
